FAERS Safety Report 9215970 (Version 1)
Quarter: 2013Q2

REPORT INFORMATION
  Report Type: Spontaneous
  Country: US (occurrence: US)
  Receive Date: 20130408
  Receipt Date: 20130408
  Transmission Date: 20140414
  Serious: No
  Sender: FDA-Public Use
  Company Number: US-JNJFOC-20130401802

PATIENT
  Sex: Male
  Weight: 211.83 kg

DRUGS (16)
  1. UNSPECIFIED FENTANYL TRANSDERMAL SYSTEM [Suspect]
     Indication: BACK PAIN
     Route: 062
     Dates: end: 2010
  2. UNSPECIFIED FENTANYL TRANSDERMAL SYSTEM [Suspect]
     Indication: ARTHRALGIA
     Route: 062
     Dates: end: 2010
  3. DURAGESIC [Suspect]
     Indication: BACK PAIN
     Route: 062
     Dates: start: 2010
  4. DURAGESIC [Suspect]
     Indication: ARTHRALGIA
     Route: 062
     Dates: start: 2010
  5. DURAGESIC [Suspect]
     Indication: BACK PAIN
     Route: 062
  6. DURAGESIC [Suspect]
     Indication: ARTHRALGIA
     Route: 062
  7. DESOWEN [Suspect]
     Indication: PRURITUS
     Route: 061
     Dates: end: 20130226
  8. TRAMADOL APAP [Concomitant]
     Indication: PAIN
     Dosage: AS NEEDED, USUALLY TWICE DAILY
     Route: 048
     Dates: start: 2010
  9. TRAMADOL APAP [Concomitant]
     Indication: PAIN
     Route: 048
     Dates: start: 2010
  10. HYDRALAZINE HCL [Concomitant]
     Indication: BLOOD PRESSURE
     Route: 048
  11. NEXIUM [Concomitant]
     Indication: GASTRIC DISORDER
     Route: 048
  12. PRAVASTATIN SODIUM [Concomitant]
     Indication: PRODUCT USED FOR UNKNOWN INDICATION
     Route: 048
  13. FUROSEMIDE [Concomitant]
     Indication: PRODUCT USED FOR UNKNOWN INDICATION
     Route: 048
  14. CELEBREX [Concomitant]
     Indication: ARTHRITIS
     Route: 048
  15. BENAZEPRIL HCL [Concomitant]
     Indication: BLOOD PRESSURE
     Route: 048
  16. METOPROLOL TARTRATE [Concomitant]
     Indication: BLOOD PRESSURE
     Route: 048

REACTIONS (8)
  - Application site reaction [Recovered/Resolved]
  - Inadequate analgesia [Not Recovered/Not Resolved]
  - Drug dose omission [Unknown]
  - Product adhesion issue [Recovered/Resolved]
  - Product quality issue [Unknown]
  - Inappropriate schedule of drug administration [Unknown]
  - Pruritus [Unknown]
  - Rash [Recovering/Resolving]
